FAERS Safety Report 14687512 (Version 2)
Quarter: 2018Q2

REPORT INFORMATION
  Report Type: Spontaneous
  Country: ES (occurrence: ES)
  Receive Date: 20180328
  Receipt Date: 20180410
  Transmission Date: 20180711
  Serious: Yes (Congenital Anomaly, Other)
  Sender: FDA-Public Use
  Company Number: ES-ABBVIE-18S-144-2300455-00

PATIENT
  Sex: Male

DRUGS (1)
  1. DEPAKINE [Suspect]
     Active Substance: VALPROATE SODIUM
     Indication: MATERNAL EXPOSURE TIMING UNSPECIFIED
     Route: 064

REACTIONS (7)
  - Hypotonia neonatal [Not Recovered/Not Resolved]
  - Arachnodactyly [Not Recovered/Not Resolved]
  - Deafness bilateral [Not Recovered/Not Resolved]
  - Cognitive disorder [Not Recovered/Not Resolved]
  - Foetal exposure during pregnancy [Unknown]
  - Foetal anticonvulsant syndrome [Not Recovered/Not Resolved]
  - Clinodactyly [Not Recovered/Not Resolved]
